FAERS Safety Report 5865989-2 (Version None)
Quarter: 2008Q3

REPORT INFORMATION
  Report Type: 
  Country: None (occurrence: None)
  Receive Date: 20080829
  Receipt Date: 20080818
  Transmission Date: 20090109
  Serious: Yes (Other)
  Sender: FDA-Public Use
  Company Number: US-PFIZER INC-2008049116

PATIENT
  Sex: Male
  Weight: 86.363 kg

DRUGS (9)
  1. CHANTIX [Suspect]
     Indication: SMOKING CESSATION THERAPY
  2. GABAPENTIN [Concomitant]
  3. CARBAMAZEPINE [Concomitant]
  4. KEPPRA [Concomitant]
  5. RISPERDAL [Concomitant]
  6. ROZEREM [Concomitant]
  7. VITAMIN TAB [Concomitant]
  8. METAMUCIL-2 [Concomitant]
  9. ALEVE [Concomitant]

REACTIONS (2)
  - CONVULSION [None]
  - DIPLOPIA [None]
